FAERS Safety Report 19899425 (Version 1)
Quarter: 2021Q3

REPORT INFORMATION
  Report Type: Spontaneous
  Country: DE (occurrence: DE)
  Receive Date: 20210930
  Receipt Date: 20210930
  Transmission Date: 20211014
  Serious: Yes (Hospitalization)
  Sender: FDA-Public Use
  Company Number: NVSC2021DE220478

PATIENT
  Sex: Female

DRUGS (4)
  1. CALCIUM HEXAL [Suspect]
     Active Substance: CALCIUM CARBONATE
     Indication: BONE DENSITY DECREASED
     Dosage: UNK (IN EVENING)
     Route: 065
     Dates: start: 201908, end: 2019
  2. CALCIUM?SANDOZ FORTISSIMUM [Suspect]
     Active Substance: CALCIUM CARBONATE\CALCIUM LACTATE GLUCONATE
     Indication: PRODUCT USED FOR UNKNOWN INDICATION
     Dosage: UNK
     Route: 065
  3. CALCIUM?SANDOZ FORTE [Suspect]
     Active Substance: CALCIUM CARBONATE\CALCIUM LACTATE GLUCONATE
     Dosage: 1 DF (FOR 6 MONTHS)
     Route: 041
  4. CALCIUM?SANDOZ FORTE [Suspect]
     Active Substance: CALCIUM CARBONATE\CALCIUM LACTATE GLUCONATE
     Indication: BONE DISORDER
     Dosage: 500 MG, BID (FOR 8 MONTHS)
     Route: 065

REACTIONS (5)
  - Vomiting [Unknown]
  - Accident [Unknown]
  - Nausea [Unknown]
  - Incorrect dosage administered [Unknown]
  - Product availability issue [Unknown]
